FAERS Safety Report 22116372 (Version 1)
Quarter: 2023Q1

REPORT INFORMATION
  Report Type: Spontaneous
  Country: US (occurrence: US)
  Receive Date: 20230320
  Receipt Date: 20230320
  Transmission Date: 20230418
  Serious: No
  Sender: FDA-Public Use
  Company Number: US-TAKEDA-2023TUS027851

PATIENT
  Age: 53 Year
  Sex: Female
  Weight: 68 kg

DRUGS (8)
  1. CUVITRU [Suspect]
     Active Substance: HUMAN IMMUNOGLOBULIN G
     Indication: Immunodeficiency common variable
     Dosage: 14 GRAM
     Route: 058
     Dates: start: 202112
  2. CUVITRU [Suspect]
     Active Substance: HUMAN IMMUNOGLOBULIN G
     Dosage: 14 GRAM
     Route: 058
  3. CUVITRU [Suspect]
     Active Substance: HUMAN IMMUNOGLOBULIN G
     Dosage: 14 GRAM
     Route: 058
  4. NABUMETONE [Concomitant]
     Active Substance: NABUMETONE
     Indication: Antiinflammatory therapy
     Dosage: UNK
     Route: 065
  5. FAMCICLOVIR [Concomitant]
     Active Substance: FAMCICLOVIR
     Dosage: UNK
     Route: 065
  6. XOLAIR [Concomitant]
     Active Substance: OMALIZUMAB
     Dosage: 300 MILLIGRAM, Q2WEEKS
     Route: 065
  7. KETORAC [Concomitant]
     Dosage: 10 MILLIGRAM
     Route: 065
  8. CARBIDOPA\LEVODOPA [Concomitant]
     Active Substance: CARBIDOPA\LEVODOPA
     Dosage: UNK
     Route: 065

REACTIONS (5)
  - Loss of personal independence in daily activities [Recovering/Resolving]
  - Joint swelling [Recovering/Resolving]
  - Memory impairment [Recovering/Resolving]
  - Swelling [Recovering/Resolving]
  - Fatigue [Recovering/Resolving]

NARRATIVE: CASE EVENT DATE: 20230312
